FAERS Safety Report 7942175-3 (Version None)
Quarter: 2011Q4

REPORT INFORMATION
  Report Type: 
  Country: None (occurrence: None)
  Receive Date: 20111123
  Receipt Date: 20111123
  Transmission Date: 20120403
  Serious: Yes (Disabling, Other)
  Sender: FDA-Public Use
  Company Number: None

PATIENT
  Sex: Female

DRUGS (1)
  1. REMIDEX [Suspect]
     Indication: BREAST CANCER
     Dosage: 1 X DAY
     Dates: start: 20090101

REACTIONS (3)
  - SKIN EXFOLIATION [None]
  - THERMAL BURN [None]
  - FEAR [None]
